FAERS Safety Report 24634592 (Version 1)
Quarter: 2024Q4

REPORT INFORMATION
  Report Type: Spontaneous
  Country: US (occurrence: US)
  Receive Date: 20241119
  Receipt Date: 20241119
  Transmission Date: 20250115
  Serious: Yes (Other)
  Sender: EMCURE PHARMACEUTICALS LTD
  Company Number: US-AVET LIFESCIENCES LTD-2024-AVET-000396

PATIENT
  Age: 57 Year
  Sex: Male

DRUGS (4)
  1. TACROLIMUS [Suspect]
     Active Substance: TACROLIMUS
     Indication: Immunosuppression
     Dosage: UNK
     Route: 065
  2. MYCOPHENOLATE MOFETIL [Suspect]
     Active Substance: MYCOPHENOLATE MOFETIL
     Indication: Immunosuppression
     Dosage: 15 MG/KG, 1 DOSE PER 8HRS; UNTIL DAY 28 POST-HSCT FOR HSCT GVHD PROPHYLAXIS
     Route: 065
     Dates: start: 20190226, end: 20190326
  3. IDARUBICIN [Concomitant]
     Active Substance: IDARUBICIN
     Indication: Acute myeloid leukaemia
     Dosage: UNK
     Route: 065
  4. CYTARABINE [Concomitant]
     Active Substance: CYTARABINE
     Indication: Acute myeloid leukaemia
     Dosage: UNK
     Route: 065

REACTIONS (5)
  - Pulmonary embolism [Unknown]
  - Deep vein thrombosis [Unknown]
  - Chronic graft versus host disease [Unknown]
  - COVID-19 [Unknown]
  - Human herpesvirus 6 infection reactivation [Unknown]

NARRATIVE: CASE EVENT DATE: 20190507
